FAERS Safety Report 11773758 (Version 1)
Quarter: 2015Q4

REPORT INFORMATION
  Report Type: Spontaneous
  Country: US (occurrence: US)
  Receive Date: 20151124
  Receipt Date: 20151124
  Transmission Date: 20160304
  Serious: No
  Sender: FDA-Public Use
  Company Number: US-BAYER-2015-474213

PATIENT
  Age: 66 Year
  Sex: Female
  Weight: 50.79 kg

DRUGS (1)
  1. MIRALAX [Suspect]
     Active Substance: POLYETHYLENE GLYCOL 3350
     Indication: INTESTINAL OPERATION
     Dosage: 1 DF (17 GRAMS), EVERY 30MINUTES
     Route: 048
     Dates: start: 20151119

REACTIONS (1)
  - Product use issue [None]
